FAERS Safety Report 4886207-8 (Version None)
Quarter: 2006Q1

REPORT INFORMATION
  Report Type: 
  Country: None (occurrence: None)
  Receive Date: 20060118
  Receipt Date: 20060104
  Transmission Date: 20060701
  Serious: Yes (Death, Hospitalization)
  Sender: FDA-Public Use
  Company Number: 220692

PATIENT
  Age: 79 Year
  Sex: Male
  Weight: 61.2 kg

DRUGS (15)
  1. AVASTIN [Suspect]
     Indication: NON-SMALL CELL LUNG CANCER
     Dosage: 15 MG/KG, Q3W, INTRAVENOUS
     Route: 042
     Dates: start: 20050614, end: 20051208
  2. GENTAMICIN [Concomitant]
  3. UNASYN (AMPICILLIN, SULBACTAM SODIUM) [Concomitant]
  4. PROTONIX [Concomitant]
  5. DOPAMINE (DOPAMINE HYDROCHLORIDE) [Concomitant]
  6. FLUCONAZOLE [Concomitant]
  7. REGLAN [Concomitant]
  8. ACETAMINOPHEN [Concomitant]
  9. FERROUS SULFATE TAB [Concomitant]
  10. TIGAN [Concomitant]
  11. ZOCOR [Concomitant]
  12. COLACE (DOCUSATE SODIUM) [Concomitant]
  13. SENNA (SENNA) [Concomitant]
  14. MILK OF MAGNESIA (MILK OF MAGNESIA) [Concomitant]
  15. VALIUM [Concomitant]

REACTIONS (6)
  - ASCITES [None]
  - DUODENAL ULCER PERFORATION [None]
  - HYPOTENSION [None]
  - METASTASES TO SPINE [None]
  - PATHOLOGICAL FRACTURE [None]
  - THORACIC VERTEBRAL FRACTURE [None]
